FAERS Safety Report 25970940 (Version 1)
Quarter: 2025Q4

REPORT INFORMATION
  Report Type: Spontaneous
  Country: US (occurrence: US)
  Receive Date: 20251028
  Receipt Date: 20251028
  Transmission Date: 20260118
  Serious: No
  Sender: PFIZER
  Company Number: US-PFIZER INC-PV202300201137

PATIENT
  Age: 77 Year
  Sex: Female
  Weight: 64.127 kg

DRUGS (4)
  1. BOSULIF [Interacting]
     Active Substance: BOSUTINIB MONOHYDRATE
     Dosage: 1 PO (PER ORAL) Q (EVERY) DAY
     Route: 048
  2. BOSULIF [Interacting]
     Active Substance: BOSUTINIB MONOHYDRATE
     Dosage: TAKE 3 DAILY
  3. DILTIAZEM HYDROCHLORIDE [Interacting]
     Active Substance: DILTIAZEM HYDROCHLORIDE
     Dosage: UNK
  4. RABEPRAZOLE [Interacting]
     Active Substance: RABEPRAZOLE
     Dosage: UNK

REACTIONS (3)
  - Dyspnoea [Unknown]
  - Asthma [Unknown]
  - Potentiating drug interaction [Unknown]

NARRATIVE: CASE EVENT DATE: 20251024
